FAERS Safety Report 5315496-0 (Version None)
Quarter: 2007Q2

REPORT INFORMATION
  Report Type: 
  Country: None (occurrence: None)
  Receive Date: 20070503
  Receipt Date: 20070424
  Transmission Date: 20071010
  Serious: Yes (Life-Threatening, Hospitalization, Other)
  Sender: FDA-Public Use
  Company Number: HQWYE182431AUG06

PATIENT
  Sex: Male
  Weight: 70 kg

DRUGS (3)
  1. MYLOTARG [Suspect]
     Indication: ACUTE MYELOID LEUKAEMIA RECURRENT
     Route: 041
     Dates: start: 20060421, end: 20060421
  2. MYLOTARG [Suspect]
     Route: 041
     Dates: start: 20060509, end: 20060509
  3. HYDROCORTISONE SODIUM SUCCINATE [Concomitant]
     Route: 042
     Dates: start: 20060523

REACTIONS (28)
  - ALANINE AMINOTRANSFERASE INCREASED [None]
  - ANAEMIA [None]
  - ASCITES [None]
  - ASPARTATE AMINOTRANSFERASE INCREASED [None]
  - BLOOD ALKALINE PHOSPHATASE INCREASED [None]
  - BLOOD BILIRUBIN INCREASED [None]
  - BLOOD LACTATE DEHYDROGENASE INCREASED [None]
  - BLOOD UREA INCREASED [None]
  - CHILLS [None]
  - CHOLELITHIASIS [None]
  - DISSEMINATED INTRAVASCULAR COAGULATION [None]
  - GAMMA-GLUTAMYLTRANSFERASE INCREASED [None]
  - GLUCOSE URINE PRESENT [None]
  - HAEMOGLOBIN DECREASED [None]
  - HEPATOMEGALY [None]
  - HYPERGLYCAEMIA [None]
  - HYPOALBUMINAEMIA [None]
  - HYPOKALAEMIA [None]
  - LEUCINE AMINOPEPTIDASE INCREASED [None]
  - NEUTROPHIL COUNT DECREASED [None]
  - OEDEMA [None]
  - PLATELET COUNT DECREASED [None]
  - PLEURAL EFFUSION [None]
  - PNEUMONIA [None]
  - PROTEIN URINE [None]
  - RESPIRATORY FAILURE [None]
  - SEPSIS [None]
  - SEPTIC SHOCK [None]
